FAERS Safety Report 17148987 (Version 1)
Quarter: 2019Q4

REPORT INFORMATION
  Report Type: Spontaneous
  Country: JP (occurrence: JP)
  Receive Date: 20191213
  Receipt Date: 20191213
  Transmission Date: 20200122
  Serious: Yes (Other)
  Sender: FDA-Public Use
  Company Number: JP-ROCHE-2497855

PATIENT
  Sex: Female

DRUGS (2)
  1. BONVIVA [Suspect]
     Active Substance: IBANDRONATE SODIUM
     Indication: OSTEOPOROSIS
     Route: 042
     Dates: start: 20191120
  2. EDIROL [Concomitant]
     Active Substance: ELDECALCITOL

REACTIONS (6)
  - Lip swelling [Unknown]
  - Back pain [Recovered/Resolved]
  - Internal haemorrhage [Not Recovered/Not Resolved]
  - Inflammation [Unknown]
  - Peripheral swelling [Unknown]
  - Swelling face [Unknown]
